FAERS Safety Report 22129677 (Version 1)
Quarter: 2023Q1

REPORT INFORMATION
  Report Type: Spontaneous
  Country: US (occurrence: None)
  Receive Date: 20230322
  Receipt Date: 20230322
  Transmission Date: 20230418
  Serious: Yes (Disabling, Other)
  Sender: FDA-Public Use
  Company Number: None

PATIENT
  Age: 63 Year
  Sex: Female
  Weight: 59.85 kg

DRUGS (7)
  1. IMIQUIMOD [Suspect]
     Active Substance: IMIQUIMOD
     Indication: Precancerous skin lesion
     Route: 061
     Dates: start: 20180301, end: 20180605
  2. AMLODIPINE [Concomitant]
     Active Substance: AMLODIPINE BESYLATE
  3. LEVOTHYROXINE [Concomitant]
     Active Substance: LEVOTHYROXINE
  4. LETROZOLE [Concomitant]
     Active Substance: LETROZOLE
  5. HYDROCHLOROTHIAZIDE [Concomitant]
     Active Substance: HYDROCHLOROTHIAZIDE
  6. ROSUVASTATIN [Concomitant]
     Active Substance: ROSUVASTATIN
  7. BIOTIN [Concomitant]
     Active Substance: BIOTIN

REACTIONS (11)
  - Application site vesicles [None]
  - Pyrexia [None]
  - Myalgia [None]
  - Headache [None]
  - Lethargy [None]
  - Abdominal pain upper [None]
  - Diarrhoea [None]
  - Application site scar [None]
  - Application site discolouration [None]
  - Application site discomfort [None]
  - Breast cancer [None]

NARRATIVE: CASE EVENT DATE: 20180315
